FAERS Safety Report 25751081 (Version 1)
Quarter: 2025Q3

REPORT INFORMATION
  Report Type: Spontaneous
  Country: US (occurrence: None)
  Receive Date: 20250830
  Receipt Date: 20250830
  Transmission Date: 20251021
  Serious: Yes (Hospitalization)
  Sender: FDA-CTU
  Company Number: None

PATIENT
  Age: 73 Year
  Sex: Female
  Weight: 53 kg

DRUGS (4)
  1. PACLITAXEL [Suspect]
     Active Substance: PACLITAXEL
     Indication: Ovarian cancer
     Route: 042
  2. dexamethasone  20 mg [Concomitant]
     Dates: start: 20250815, end: 20250815
  3. DIPHENHYDRAMINE [Concomitant]
     Active Substance: DIPHENHYDRAMINE
     Dates: start: 20250815, end: 20250815
  4. FAMOTIDINE [Concomitant]
     Active Substance: FAMOTIDINE
     Dates: start: 20250815, end: 20250815

REACTIONS (4)
  - Infusion related reaction [None]
  - Erythema [None]
  - Hypoxia [None]
  - Hyperhidrosis [None]

NARRATIVE: CASE EVENT DATE: 20250815
